FAERS Safety Report 6818269-2 (Version None)
Quarter: 2010Q3

REPORT INFORMATION
  Report Type: 
  Country: None (occurrence: None)
  Receive Date: 20100706
  Receipt Date: 20070607
  Transmission Date: 20110219
  Serious: No
  Sender: FDA-Public Use
  Company Number: US-PFIZER INC-2007034801

PATIENT
  Sex: Male
  Weight: 76 kg

DRUGS (5)
  1. ZITHROMAX [Suspect]
     Indication: SINUSITIS
     Route: 048
     Dates: start: 20070329, end: 20070425
  2. ALL OTHER THERAPEUTIC PRODUCTS [Concomitant]
     Indication: ATTENTION DEFICIT/HYPERACTIVITY DISORDER
  3. CONCERTA [Concomitant]
     Route: 048
     Dates: start: 20040101
  4. ALBUTEROL [Concomitant]
     Dates: start: 20070329, end: 20070330
  5. PREDNISONE [Concomitant]
     Route: 048
     Dates: start: 20070329, end: 20070331

REACTIONS (4)
  - ABDOMINAL PAIN [None]
  - APPENDICITIS [None]
  - DIARRHOEA [None]
  - INAPPROPRIATE SCHEDULE OF DRUG ADMINISTRATION [None]
